FAERS Safety Report 4867634-1 (Version None)
Quarter: 2005Q4

REPORT INFORMATION
  Report Type: 
  Country: None (occurrence: None)
  Receive Date: 20051222
  Receipt Date: 20051213
  Transmission Date: 20060501
  Serious: Yes (Hospitalization)
  Sender: FDA-Public Use
  Company Number: SP00520

PATIENT
  Age: 52 Year
  Sex: Male
  Weight: 103.8737 kg

DRUGS (7)
  1. XIFAXAN [Suspect]
     Indication: HEPATIC ENCEPHALOPATHY
     Dosage: 400MG/TID, ORAL
     Route: 048
     Dates: start: 20051005, end: 20051101
  2. PREVACID [Concomitant]
  3. POTASSIUM [Concomitant]
  4. ZINCATE [Concomitant]
  5. SPIRONOLACTONE [Concomitant]
  6. FUROSEMIDE [Concomitant]
  7. MULTIVITAMIN [Concomitant]

REACTIONS (6)
  - ASCITES [None]
  - BLOOD ALBUMIN DECREASED [None]
  - BLOOD GLUCOSE INCREASED [None]
  - BLOOD SODIUM DECREASED [None]
  - PANCREATIC INJURY [None]
  - VOMITING [None]
